FAERS Safety Report 7609560-0 (Version None)
Quarter: 2011Q3

REPORT INFORMATION
  Report Type: 
  Country: None (occurrence: None)
  Receive Date: 20110714
  Receipt Date: 20110629
  Transmission Date: 20111222
  Serious: Yes (Death, Hospitalization, Other)
  Sender: FDA-Public Use
  Company Number: US-PFIZER INC-HQ5850112JAN2001

PATIENT
  Age: 36 Year
  Sex: Male

DRUGS (23)
  1. FUROSEMIDE [Concomitant]
  2. LORAZEPAM [Concomitant]
  3. TRAMADOL HCL [Interacting]
     Dosage: 50 MG, AS NEEDED, 1 TO 2 TABLETS
     Route: 048
  4. TRAZODONE HCL [Interacting]
     Dosage: 75 MG, 1X/DAY
     Route: 048
  5. DOCUSATE SODIUM [Concomitant]
  6. TRAZODONE HCL [Interacting]
     Dosage: 100 MG, FREQUENCY UNSPECIFIED
     Route: 048
  7. FOLIC ACID [Concomitant]
  8. LITHIUM [Concomitant]
     Route: 048
  9. METOPROLOL [Concomitant]
  10. PARACETAMOL [Concomitant]
  11. EFFEXOR [Suspect]
     Dosage: 300 MG, 1X/DAY
     Route: 065
  12. BENZONATATE [Concomitant]
  13. FAMOTIDINE [Concomitant]
  14. VITAMIN B [Concomitant]
  15. EFFEXOR [Interacting]
     Dosage: 225 MG DAILY
     Route: 065
  16. CHLORDIAZEPOXIDE [Concomitant]
  17. LANSOPRAZOLE [Concomitant]
  18. PROMETHAZINE [Concomitant]
  19. METOCLOPRAMIDE HYDROCHLORIDE [Concomitant]
  20. RANITIDINE [Concomitant]
  21. TEMAZEPAM [Concomitant]
  22. QUETIAPINE [Interacting]
     Dosage: 100 TO 150 MG DAILY
     Route: 048
  23. ENALAPRIL [Concomitant]

REACTIONS (16)
  - CONVULSION [None]
  - NAUSEA [None]
  - HYPERHIDROSIS [None]
  - ELECTROCARDIOGRAM T WAVE PEAKED [None]
  - TONGUE DISORDER [None]
  - DIARRHOEA [None]
  - TREMOR [None]
  - CIRCULATORY COLLAPSE [None]
  - HYPERKALAEMIA [None]
  - INSOMNIA [None]
  - HEAD INJURY [None]
  - DRUG INTERACTION [None]
  - ASTHENIA [None]
  - DEHYDRATION [None]
  - VOMITING [None]
  - ELECTROCARDIOGRAM ST SEGMENT ELEVATION [None]
